FAERS Safety Report 13770902 (Version 2)
Quarter: 2018Q4

REPORT INFORMATION
  Report Type: Spontaneous
  Country: US (occurrence: US)
  Receive Date: 20170720
  Receipt Date: 20181204
  Transmission Date: 20190204
  Serious: Yes (Life-Threatening, Other)
  Sender: FDA-Public Use
  Company Number: US-MACLEODS PHARMACEUTICALS US LTD-MAC2017005426

PATIENT

DRUGS (1)
  1. METFORMIN HYDROCHLORIDE. [Suspect]
     Active Substance: METFORMIN HYDROCHLORIDE
     Indication: TYPE 2 DIABETES MELLITUS
     Dosage: UNK
     Route: 065

REACTIONS (13)
  - Pancytopenia [Recovering/Resolving]
  - Presyncope [Recovering/Resolving]
  - Pernicious anaemia [Recovering/Resolving]
  - Atrophic glossitis [Recovering/Resolving]
  - Vitamin B12 deficiency [Recovering/Resolving]
  - Leukopenia [Recovering/Resolving]
  - Conjunctival pallor [Recovering/Resolving]
  - Night sweats [Recovering/Resolving]
  - Dizziness [Recovering/Resolving]
  - Autoimmune haemolytic anaemia [Recovering/Resolving]
  - Neutrophil hypersegmented morphology present [Recovering/Resolving]
  - Paraesthesia [Recovering/Resolving]
  - Thrombocytopenia [Recovering/Resolving]
